FAERS Safety Report 13177595 (Version 1)
Quarter: 2017Q1

REPORT INFORMATION
  Report Type: Report from Study
  Country: US (occurrence: US)
  Receive Date: 20170201
  Receipt Date: 20170201
  Transmission Date: 20170428
  Serious: No
  Sender: FDA-Public Use
  Company Number: US-EXELIXIS-CABO-16006562

PATIENT
  Sex: Female

DRUGS (13)
  1. COMETRIQ [Suspect]
     Active Substance: CABOZANTINIB S-MALATE
     Indication: RENAL CANCER
     Dosage: 60 MG, QD
     Route: 048
     Dates: start: 20160601, end: 201606
  2. CELEXA [Concomitant]
     Active Substance: CITALOPRAM HYDROBROMIDE
  3. ECOTRIN [Concomitant]
     Active Substance: ASPIRIN
  4. PROCHLORPERAZINE. [Concomitant]
     Active Substance: PROCHLORPERAZINE
  5. ATENOLOL. [Concomitant]
     Active Substance: ATENOLOL
  6. NITROSTAT [Concomitant]
     Active Substance: NITROGLYCERIN
  7. MEGACE [Concomitant]
     Active Substance: MEGESTROL ACETATE
  8. AMLODIPINE [Concomitant]
     Active Substance: AMLODIPINE BESYLATE
  9. ATIVAN [Concomitant]
     Active Substance: LORAZEPAM
  10. GRANISETRON [Concomitant]
     Active Substance: GRANISETRON
  11. COMETRIQ [Suspect]
     Active Substance: CABOZANTINIB S-MALATE
     Indication: METASTASES TO LIVER
     Dosage: 20 MG, QD
     Route: 048
     Dates: start: 201606, end: 20160624
  12. LORAZEPAM. [Concomitant]
     Active Substance: LORAZEPAM
  13. TRIAMCINOLONE [Concomitant]
     Active Substance: TRIAMCINOLONE

REACTIONS (28)
  - Contusion [Recovering/Resolving]
  - Insomnia [Unknown]
  - Epistaxis [Unknown]
  - Headache [Unknown]
  - Oropharyngeal pain [Unknown]
  - Dysphonia [Unknown]
  - Off label use [Unknown]
  - Protein urine [Unknown]
  - Somnolence [Not Recovered/Not Resolved]
  - Gingivitis [Unknown]
  - Fatigue [Unknown]
  - Lethargy [Recovering/Resolving]
  - Anal fissure [Unknown]
  - Stomatitis [Unknown]
  - Back pain [Unknown]
  - Haematemesis [Unknown]
  - Blood pressure increased [Unknown]
  - Retching [Unknown]
  - Discomfort [Unknown]
  - Haematochezia [Recovered/Resolved]
  - Infective glossitis [Unknown]
  - Abdominal pain upper [Not Recovered/Not Resolved]
  - Pain [Unknown]
  - Nausea [Recovering/Resolving]
  - Diarrhoea [Not Recovered/Not Resolved]
  - Constipation [Not Recovered/Not Resolved]
  - Vomiting [Not Recovered/Not Resolved]
  - Asthenia [Not Recovered/Not Resolved]
